FAERS Safety Report 10256365 (Version 2)
Quarter: 2014Q3

REPORT INFORMATION
  Report Type: Report from Study
  Country: MX (occurrence: MX)
  Receive Date: 20140624
  Receipt Date: 20140807
  Transmission Date: 20150326
  Serious: No
  Sender: FDA-Public Use
  Company Number: PHHY2014MX077933

PATIENT
  Age: 93 Year
  Sex: Female

DRUGS (6)
  1. RANITIDINE [Concomitant]
     Active Substance: RANITIDINE\RANITIDINE HYDROCHLORIDE
     Dosage: 150 MG, DAILY (FOR PERIODS OF TIME)
  2. CO-DIOVAN [Suspect]
     Active Substance: HYDROCHLOROTHIAZIDE\VALSARTAN
     Indication: HYPERTENSION
     Dosage: 1 DF (160/12.5 MG), DAILY
     Route: 048
     Dates: end: 201405
  3. ASPIRIN PROTECT [Concomitant]
     Active Substance: ASPIRIN
     Indication: ANTICOAGULANT THERAPY
     Dosage: 1 DF, DAILY
  4. SERMION [Concomitant]
     Active Substance: NICERGOLINE
     Indication: DIZZINESS
     Dosage: 1 DF, DAILY (STOPPED 2 MONTHS AGO)
  5. ESPAVEN ENZIMATICO [Concomitant]
     Indication: DYSPEPSIA
     Dosage: 1 DF, DAILY
  6. CO-DIOVAN [Suspect]
     Active Substance: HYDROCHLOROTHIAZIDE\VALSARTAN
     Dosage: 0.5 DF (160/12.5 MG), DAILY
     Route: 048
     Dates: start: 201405

REACTIONS (3)
  - Drug prescribing error [Unknown]
  - Blood pressure decreased [Recovered/Resolved]
  - Wrong technique in drug usage process [Not Recovered/Not Resolved]

NARRATIVE: CASE EVENT DATE: 201401
